FAERS Safety Report 8395051-9 (Version None)
Quarter: 2012Q2

REPORT INFORMATION
  Report Type: 
  Country: None (occurrence: None)
  Receive Date: 20120530
  Receipt Date: 20120515
  Transmission Date: 20120825
  Serious: Yes (Death, Life-Threatening, Hospitalization, Other)
  Sender: FDA-Public Use
  Company Number: FR-CELGENEUS-056-21880-12051920

PATIENT
  Sex: Female

DRUGS (10)
  1. REVLIMID [Suspect]
     Dosage: 5 MILLIGRAM
     Route: 048
     Dates: start: 20120305, end: 20120314
  2. TRAMADOL HCL [Suspect]
     Indication: PAIN
     Dosage: 100 MILLIGRAM
     Route: 048
     Dates: start: 20120305, end: 20120403
  3. LERCANIDIPINE [Concomitant]
     Dosage: 5 MILLIGRAM
     Route: 048
  4. NEBIVOLOL HCL [Concomitant]
     Dosage: 5 MILLIGRAM
     Route: 048
  5. RABEPRAZOLE SODIUM [Concomitant]
     Dosage: 10 MILLIGRAM
     Route: 048
     Dates: end: 20120326
  6. IRBESARTAN [Concomitant]
     Dosage: 150 MILLIGRAM
     Route: 048
     Dates: end: 20120317
  7. FOLIC ACID [Suspect]
     Dosage: 5 MILLIGRAM
     Route: 048
     Dates: start: 20120305, end: 20120329
  8. OFLOXACIN [Suspect]
     Indication: BACTERIAL PYELONEPHRITIS
     Dosage: 200 MILLIGRAM
     Route: 048
     Dates: start: 20120314, end: 20120323
  9. PENTOXIFYLLINE [Concomitant]
     Route: 048
     Dates: end: 20120324
  10. TEMAZEPAM [Concomitant]
     Dosage: 50 MILLIGRAM
     Route: 048
     Dates: end: 20120324

REACTIONS (1)
  - RENAL FAILURE [None]
